FAERS Safety Report 10251975 (Version 1)
Quarter: 2014Q2

REPORT INFORMATION
  Report Type: Spontaneous
  Country: AU (occurrence: AU)
  Receive Date: 20140623
  Receipt Date: 20140623
  Transmission Date: 20141212
  Serious: Yes (Other)
  Sender: FDA-Public Use
  Company Number: AU-ABBVIE-14P-008-1248699-00

PATIENT
  Age: 61 Year
  Sex: Female

DRUGS (13)
  1. HUMIRA [Suspect]
     Indication: PSORIATIC ARTHROPATHY
     Dates: start: 201404
  2. PREDNISONE [Suspect]
     Indication: RASH PAPULAR
     Dates: start: 20140526, end: 20140529
  3. PREDNISONE [Suspect]
     Indication: RASH PRURITIC
     Dates: start: 20140529, end: 20140601
  4. PREDNISONE [Suspect]
     Indication: PRURITUS
     Dates: start: 20140609, end: 20140612
  5. PREDNISONE [Suspect]
     Dates: start: 20140612
  6. ASPIRIN [Concomitant]
     Indication: ANEURYSM
  7. ATACAND PLUS [Concomitant]
     Indication: ANEURYSM
  8. LIPITOR [Concomitant]
     Indication: PRODUCT USED FOR UNKNOWN INDICATION
  9. VITAMIN B [Concomitant]
     Indication: PRODUCT USED FOR UNKNOWN INDICATION
  10. VITAMIN D3 [Concomitant]
     Indication: PRODUCT USED FOR UNKNOWN INDICATION
  11. MAGNESIUM [Concomitant]
     Indication: PRODUCT USED FOR UNKNOWN INDICATION
  12. LIVIAL [Concomitant]
     Indication: PRODUCT USED FOR UNKNOWN INDICATION
  13. LYRICA [Concomitant]
     Indication: PRODUCT USED FOR UNKNOWN INDICATION

REACTIONS (16)
  - Peripheral swelling [Not Recovered/Not Resolved]
  - Lip swelling [Not Recovered/Not Resolved]
  - Lip swelling [Unknown]
  - Chest discomfort [Unknown]
  - Chest discomfort [Not Recovered/Not Resolved]
  - Dyspnoea [Unknown]
  - Dyspnoea [Not Recovered/Not Resolved]
  - Rash papular [Unknown]
  - Tinnitus [Not Recovered/Not Resolved]
  - Erythema [Not Recovered/Not Resolved]
  - Burning sensation [Not Recovered/Not Resolved]
  - Pruritus [Not Recovered/Not Resolved]
  - Rash pruritic [Unknown]
  - Drug effect incomplete [Unknown]
  - Arthritis [Unknown]
  - Arthralgia [Unknown]
